FAERS Safety Report 23545573 (Version 3)
Quarter: 2024Q1

REPORT INFORMATION
  Report Type: Spontaneous
  Country: DE (occurrence: DE)
  Receive Date: 20240220
  Receipt Date: 20240311
  Transmission Date: 20240410
  Serious: Yes (Life-Threatening, Hospitalization, Other)
  Sender: FDA-Public Use
  Company Number: DE-DCGMA-24202892

PATIENT
  Age: 62 Year
  Sex: Male
  Weight: 78 kg

DRUGS (11)
  1. PEMETREXED [Suspect]
     Active Substance: PEMETREXED
     Indication: Non-small cell lung cancer
     Dosage: 930 MG, UNKNOWN
     Route: 042
     Dates: start: 202212
  2. PEMETREXED [Suspect]
     Active Substance: PEMETREXED
     Dosage: 930 MG, UNKNOWN (MAINTENANCE THERAPY SINCE 03/23)
     Route: 042
     Dates: start: 202303
  3. KEYTRUDA [Suspect]
     Active Substance: PEMBROLIZUMAB
     Indication: Non-small cell lung cancer
     Dosage: 200 MG, UNKNOWN
     Route: 042
     Dates: start: 202212
  4. KEYTRUDA [Suspect]
     Active Substance: PEMBROLIZUMAB
     Dosage: 200 MG, UNKNOWN (SINCE 03/23 MAINTENANCE THERAPY)
     Route: 042
     Dates: start: 202303
  5. AMOCLAV [AMOXICILLIN TRIHYDRATE;CLAVULANATE P [Concomitant]
     Indication: Pneumonia
     Dosage: UNK
     Route: 048
     Dates: start: 20240118, end: 20240125
  6. CLARITHROMYCIN [Concomitant]
     Active Substance: CLARITHROMYCIN
     Indication: Pneumonia
     Route: 048
     Dates: start: 20240125, end: 20240127
  7. INFLIXIMAB [Concomitant]
     Active Substance: INFLIXIMAB
     Indication: Pneumonitis
     Dosage: 0-1-0
     Route: 042
     Dates: start: 20240201
  8. COTRIM [Concomitant]
     Active Substance: SULFAMETHOXAZOLE\TRIMETHOPRIM
     Indication: Pneumonia
     Dosage: 1600 MG /320 MG 1-1-1-1
     Route: 042
     Dates: start: 20240128, end: 20240131
  9. PIPERACILLIN SODIUM\TAZOBACTAM SODIUM [Concomitant]
     Active Substance: PIPERACILLIN SODIUM\TAZOBACTAM SODIUM
     Indication: Pneumonia
     Dosage: 4.5 G , 1-1-1-1
     Route: 042
     Dates: start: 20240127, end: 20240131
  10. PREDNISOLONE [Concomitant]
     Active Substance: PREDNISOLONE
     Indication: Pneumonitis
     Dosage: 1-0-0
     Route: 042
     Dates: start: 20240127
  11. AZITHROMYCIN [Concomitant]
     Active Substance: AZITHROMYCIN
     Indication: Pneumonia
     Dosage: 1-0-0
     Route: 042
     Dates: start: 20240127, end: 20240131

REACTIONS (2)
  - Respiratory failure [Not Recovered/Not Resolved]
  - Pneumonitis [Not Recovered/Not Resolved]

NARRATIVE: CASE EVENT DATE: 20240117
